FAERS Safety Report 25454915 (Version 1)
Quarter: 2025Q2

REPORT INFORMATION
  Report Type: Report from Study
  Country: ES (occurrence: ES)
  Receive Date: 20250619
  Receipt Date: 20250619
  Transmission Date: 20250717
  Serious: Yes (Other)
  Sender: RANBAXY
  Company Number: ES-SUN PHARMACEUTICAL INDUSTRIES LTD-2025R1-512387

PATIENT
  Age: 23 Month

DRUGS (3)
  1. DAPSONE [Suspect]
     Active Substance: DAPSONE
     Indication: Linear IgA disease
     Route: 048
  2. DAPSONE [Suspect]
     Active Substance: DAPSONE
     Route: 048
  3. DAPSONE [Suspect]
     Active Substance: DAPSONE
     Route: 048

REACTIONS (1)
  - Anaemia megaloblastic [Recovered/Resolved]
